FAERS Safety Report 15335748 (Version 2)
Quarter: 2018Q3

REPORT INFORMATION
  Report Type: Spontaneous
  Country: JP (occurrence: JP)
  Receive Date: 20180830
  Receipt Date: 20180920
  Transmission Date: 20181010
  Serious: Yes (Hospitalization)
  Sender: FDA-Public Use
  Company Number: JP-CELGENEUS-JPN-20180809135

PATIENT
  Age: 58 Year
  Sex: Male

DRUGS (2)
  1. POMALYST [Suspect]
     Active Substance: POMALIDOMIDE
     Indication: CARDIAC AMYLOIDOSIS
     Dosage: 4 MILLIGRAM
     Route: 048
     Dates: start: 20180629, end: 20180817
  2. LENADEX [Suspect]
     Active Substance: DEXAMETHASONE ACETATE
     Indication: CARDIAC AMYLOIDOSIS
     Dosage: UNKNOWN
     Route: 048
     Dates: start: 20180629, end: 2018

REACTIONS (1)
  - Peritonitis [Not Recovered/Not Resolved]

NARRATIVE: CASE EVENT DATE: 20180821
